FAERS Safety Report 4622428-7 (Version None)
Quarter: 2005Q1

REPORT INFORMATION
  Report Type: 
  Country: None (occurrence: None)
  Receive Date: 20050330
  Receipt Date: 20041213
  Transmission Date: 20050727
  Serious: Yes (Other)
  Sender: FDA-Public Use
  Company Number: DE-NOVOPROD-241068

PATIENT
  Age: 39 Year
  Sex: Female

DRUGS (1)
  1. ACTIVELLE [Suspect]
     Indication: HORMONE REPLACEMENT THERAPY
     Dosage: 1 TAB, QD
     Route: 048
     Dates: start: 20020101

REACTIONS (12)
  - ARRHYTHMIA [None]
  - DRUG INEFFECTIVE [None]
  - DYSPHORIA [None]
  - GRAND MAL CONVULSION [None]
  - HOT FLUSH [None]
  - IMPAIRED DRIVING ABILITY [None]
  - LIMB INJURY [None]
  - MALAISE [None]
  - OESTRADIOL DECREASED [None]
  - PHARMACEUTICAL PRODUCT COMPLAINT [None]
  - SLEEP DISORDER [None]
  - VERTIGO [None]
